FAERS Safety Report 22616289 (Version 2)
Quarter: 2024Q1

REPORT INFORMATION
  Report Type: Spontaneous
  Country: US (occurrence: US)
  Receive Date: 20230619
  Receipt Date: 20240223
  Transmission Date: 20240410
  Serious: Yes (Other)
  Sender: FDA-Public Use
  Company Number: US-ELI_LILLY_AND_COMPANY-US202306008376

PATIENT
  Age: 67 Year
  Sex: Female

DRUGS (5)
  1. MOUNJARO [Suspect]
     Active Substance: TIRZEPATIDE
     Indication: Product used for unknown indication
     Dosage: 2.5 MG, UNKNOWN
     Route: 058
  2. MOUNJARO [Suspect]
     Active Substance: TIRZEPATIDE
     Indication: Product used for unknown indication
     Dosage: 2.5 MG, UNKNOWN
     Route: 058
  3. MOUNJARO [Suspect]
     Active Substance: TIRZEPATIDE
     Indication: Product used for unknown indication
     Dosage: 2.5 MG, UNKNOWN
     Route: 058
  4. MOUNJARO [Suspect]
     Active Substance: TIRZEPATIDE
     Indication: Product used for unknown indication
     Dosage: 2.5 MG, UNKNOWN
     Route: 058
  5. OZEMPIC [Concomitant]
     Active Substance: SEMAGLUTIDE
     Indication: Product used for unknown indication
     Dosage: UNK

REACTIONS (8)
  - Weight decreased [Unknown]
  - Chills [Unknown]
  - Decreased appetite [Unknown]
  - Nausea [Unknown]
  - Diarrhoea [Unknown]
  - Vomiting [Unknown]
  - Abdominal pain [Unknown]
  - Injection site haemorrhage [Unknown]

NARRATIVE: CASE EVENT DATE: 20230419
